FAERS Safety Report 5149182-7 (Version None)
Quarter: 2006Q4

REPORT INFORMATION
  Report Type: 
  Country: None (occurrence: None)
  Receive Date: 20061113
  Receipt Date: 20060824
  Transmission Date: 20070319
  Serious: No
  Sender: FDA-Public Use
  Company Number: 461124

PATIENT
  Sex: Female

DRUGS (1)
  1. COREG [Suspect]

REACTIONS (2)
  - ABDOMINAL PAIN UPPER [None]
  - PHARYNGOLARYNGEAL PAIN [None]
